FAERS Safety Report 17956080 (Version 6)
Quarter: 2021Q3

REPORT INFORMATION
  Report Type: Spontaneous
  Country: US (occurrence: US)
  Receive Date: 20200629
  Receipt Date: 20210812
  Transmission Date: 20211014
  Serious: Yes (Hospitalization)
  Sender: FDA-Public Use
  Company Number: US-PFIZER INC-2020247111

PATIENT
  Age: 70 Year
  Sex: Female
  Weight: 65.77 kg

DRUGS (2)
  1. IBRANCE [Suspect]
     Active Substance: PALBOCICLIB
     Dosage: 125MG, CYCLIC (21 DAYS ON, 7 DAYS OFF)
     Dates: start: 20200507, end: 20201015
  2. IBRANCE [Suspect]
     Active Substance: PALBOCICLIB
     Indication: BREAST CANCER METASTATIC
     Dosage: 250 MG, CYCLIC (250 MG ONCE A DAY FOR 21 DAYS OFF A WEEK)
     Dates: start: 20200507

REACTIONS (20)
  - Dehydration [Unknown]
  - Gastric disorder [Unknown]
  - Nausea [Unknown]
  - Hyperhidrosis [Unknown]
  - Diarrhoea [Unknown]
  - Lactose intolerance [Not Recovered/Not Resolved]
  - Vomiting [Unknown]
  - Pain [Unknown]
  - Rash [Not Recovered/Not Resolved]
  - Neoplasm progression [Unknown]
  - Weight decreased [Unknown]
  - COVID-19 [Not Recovered/Not Resolved]
  - Feeding disorder [Unknown]
  - Speech disorder [Unknown]
  - Presyncope [Unknown]
  - Arthralgia [Not Recovered/Not Resolved]
  - Malaise [Unknown]
  - Fatigue [Not Recovered/Not Resolved]
  - Off label use [Unknown]
  - Somnolence [Unknown]

NARRATIVE: CASE EVENT DATE: 2020
